FAERS Safety Report 6425943-9 (Version None)
Quarter: 2009Q4

REPORT INFORMATION
  Report Type: 
  Country: None (occurrence: None)
  Receive Date: 20091103
  Receipt Date: 20091103
  Transmission Date: 20100525
  Serious: Yes (Hospitalization, Other)
  Sender: FDA-Public Use
  Company Number: None

PATIENT
  Age: 24 Year
  Sex: Female
  Weight: 113.3993 kg

DRUGS (1)
  1. MICROGESTIN FE 1.5/30 [Suspect]
     Dosage: 1 PILL ONCE DAILY, PO
     Route: 048
     Dates: start: 20010701, end: 20020830

REACTIONS (2)
  - CHOLELITHIASIS [None]
  - PANCREATITIS ACUTE [None]
